FAERS Safety Report 6184728-1 (Version None)
Quarter: 2009Q2

REPORT INFORMATION
  Report Type: 
  Country: None (occurrence: None)
  Receive Date: 20090508
  Receipt Date: 20090430
  Transmission Date: 20091009
  Serious: Yes (Death, Other)
  Sender: FDA-Public Use
  Company Number: AT-GENENTECH-282461

PATIENT
  Age: 59 Year
  Sex: Male

DRUGS (1)
  1. AVASTIN [Suspect]
     Indication: GLIOBLASTOMA MULTIFORME
     Dosage: 400 MG, UNK
     Route: 042
     Dates: start: 20090331

REACTIONS (7)
  - DEATH [None]
  - DIVERTICULITIS [None]
  - LEUKOPENIA [None]
  - PERITONITIS [None]
  - PULMONARY EMBOLISM [None]
  - SEPSIS [None]
  - VENOUS THROMBOSIS LIMB [None]
